FAERS Safety Report 5782458-9 (Version None)
Quarter: 2008Q2

REPORT INFORMATION
  Report Type: 
  Country: None (occurrence: None)
  Receive Date: 20080623
  Receipt Date: 20080616
  Transmission Date: 20081010
  Serious: Yes (Death)
  Sender: FDA-Public Use
  Company Number: PHEH2008US05396

PATIENT
  Sex: Male

DRUGS (10)
  1. GLEEVEC [Suspect]
     Indication: CHRONIC MYELOID LEUKAEMIA
     Dosage: 400 MG, QD
     Route: 048
     Dates: start: 20080610, end: 20080612
  2. LANTUS [Concomitant]
     Dosage: 20 U, QD
  3. HUMALOG [Concomitant]
     Dosage: 40 U, QD
  4. COZAAR [Concomitant]
     Dosage: 40 MG, QD
  5. SIMVASTATIN [Concomitant]
     Dosage: 80 MG, QD
  6. DIGOXIN [Concomitant]
     Dosage: 0.25 MG, QD
  7. ALLOPURINOL [Concomitant]
     Dosage: 200 MG, QD
  8. SPIRONOLACTONE [Concomitant]
     Dosage: 40 MG, QD
  9. VITAMIN D [Concomitant]
     Dosage: 1600 MG, QD
  10. FLAX SEED OIL [Concomitant]
     Dosage: UNK

REACTIONS (5)
  - CARDIAC FAILURE [None]
  - FRACTURE [None]
  - HEART RATE DECREASED [None]
  - HIP FRACTURE [None]
  - INJURY [None]
